FAERS Safety Report 10630038 (Version 1)
Quarter: 2014Q4

REPORT INFORMATION
  Report Type: Spontaneous
  Country: US (occurrence: US)
  Receive Date: 20141205
  Receipt Date: 20141205
  Transmission Date: 20150529
  Serious: No
  Sender: FDA-Public Use
  Company Number: US-BRISTOL-MYERS SQUIBB COMPANY-21251426

PATIENT
  Age: 76 Year
  Sex: Male

DRUGS (2)
  1. MAGNESIUM OXIDE. [Concomitant]
     Active Substance: MAGNESIUM OXIDE
  2. SPRYCEL [Suspect]
     Active Substance: DASATINIB
     Dates: start: 20131121

REACTIONS (2)
  - Sinusitis [Not Recovered/Not Resolved]
  - Laryngitis [Not Recovered/Not Resolved]
